FAERS Safety Report 8119198-7 (Version None)
Quarter: 2012Q1

REPORT INFORMATION
  Report Type: 
  Country: None (occurrence: None)
  Receive Date: 20120207
  Receipt Date: 20120206
  Transmission Date: 20120608
  Serious: Yes (Hospitalization)
  Sender: FDA-Public Use
  Company Number: JP-EISAI INC-E2020-10214-CLI-JP

PATIENT
  Sex: Female
  Weight: 68 kg

DRUGS (7)
  1. MADOPAR [Concomitant]
     Indication: PARKINSON'S DISEASE
     Route: 048
  2. GASMOTIN [Concomitant]
     Indication: CONSTIPATION
     Route: 048
  3. PERMAX [Concomitant]
     Indication: PARKINSON'S DISEASE
     Route: 048
  4. DONEPEZIL HCL [Suspect]
     Dosage: DOUBLE BLIND
     Route: 048
     Dates: start: 20111115
  5. MAGMITT [Concomitant]
     Indication: CONSTIPATION
     Route: 048
  6. VESICARE OD [Concomitant]
     Indication: POLLAKIURIA
     Route: 048
     Dates: start: 20111101
  7. DONEPEZIL HCL [Suspect]
     Indication: PARKINSON'S DISEASE
     Dosage: DOUBLE BLIND
     Route: 048
     Dates: start: 20111101, end: 20111114

REACTIONS (1)
  - DYSTONIA [None]
